FAERS Safety Report 10640225 (Version 2)
Quarter: 2014Q4

REPORT INFORMATION
  Report Type: Spontaneous
  Country: DK (occurrence: None)
  Receive Date: 20141205
  Receipt Date: 20141229
  Transmission Date: 20150529
  Serious: Yes (Hospitalization)
  Sender: FDA-Public Use
  Company Number: 2014MPI01543

PATIENT
  Age: 19 Year
  Sex: Male
  Weight: 102 kg

DRUGS (4)
  1. VINBLASTINE (VINBLASTINE SULFATE) INJECTION [Suspect]
     Active Substance: VINBLASTINE
     Indication: HODGKIN^S DISEASE
     Route: 042
     Dates: start: 20141001, end: 20141112
  2. BRENTUXIMAB VEDOTIN (BRENTUXIMAB VEDOTIN) INJECTION [Suspect]
     Active Substance: BRENTUXIMAB VEDOTIN
     Indication: HODGKIN^S DISEASE
     Route: 042
     Dates: start: 20141001, end: 20141112
  3. DOXORUBICIN (DOXORUBICIN) INJECTION [Suspect]
     Active Substance: DOXORUBICIN
     Indication: HODGKIN^S DISEASE
     Route: 042
     Dates: start: 20141001, end: 20141112
  4. DACARBAZINE (DACARBAZINE) INJECTION [Suspect]
     Active Substance: DACARBAZINE
     Indication: HODGKIN^S DISEASE
     Route: 042
     Dates: start: 20141001, end: 20141112

REACTIONS (9)
  - Depressed mood [None]
  - Depression [None]
  - Abdominal pain [None]
  - Vomiting [None]
  - Crying [None]
  - Nausea [None]
  - Constipation [None]
  - Insomnia [None]
  - Social avoidant behaviour [None]

NARRATIVE: CASE EVENT DATE: 20141119
